FAERS Safety Report 8965337 (Version 1)
Quarter: 2012Q4

REPORT INFORMATION
  Report Type: 
  Country: US (occurrence: US)
  Receive Date: 20121213
  Receipt Date: 20121213
  Transmission Date: 20130627
  Serious: No
  Sender: FDA-Public Use
  Company Number: US-ACTELION-A-NJ2012-75934

PATIENT
  Age: 45 Year
  Sex: Female

DRUGS (2)
  1. TRACLEER [Suspect]
     Indication: PULMONARY ARTERIAL HYPERTENSION
     Dosage: UNK
     Route: 048
     Dates: start: 20121031
  2. ADCIRCA [Concomitant]
     Dosage: UNK

REACTIONS (2)
  - Pregnancy [Unknown]
  - Maternal exposure during pregnancy [None]
